FAERS Safety Report 9724772 (Version 2)
Quarter: 2013Q4

REPORT INFORMATION
  Report Type: Spontaneous
  Country: CZ (occurrence: CZ)
  Receive Date: 20131202
  Receipt Date: 20131203
  Transmission Date: 20140711
  Serious: Yes (Hospitalization)
  Sender: FDA-Public Use
  Company Number: CZ-B.I. PHARMACEUTICALS,INC./RIDGEFIELD-2013-BI-39111CZ

PATIENT
  Age: 76 Year
  Sex: Male
  Weight: 76 kg

DRUGS (5)
  1. PRADAXA [Suspect]
     Indication: INTERNATIONAL NORMALISED RATIO ABNORMAL
     Dosage: 220 MG
     Route: 048
     Dates: start: 20130816
  2. BETALOK ZOK (METOPROLOL) [Concomitant]
     Indication: HYPERTENSION
     Dosage: 12.5 MG
     Route: 048
     Dates: end: 2000
  3. FURON 40 (FUROSEMIDUM) [Concomitant]
     Indication: HYPERTENSION
     Dosage: 40 MG
     Route: 048
     Dates: start: 20130813
  4. RIVODARON, (AMIODARON) [Concomitant]
     Indication: ARRHYTHMIA
     Dosage: 200 MG
     Route: 048
     Dates: start: 20120625
  5. PRESTARIUM NEO (PERINDOPRILUM) [Concomitant]
     Dosage: 2.5 MG
     Dates: start: 20131015

REACTIONS (1)
  - Cardiac failure [Recovered/Resolved]
